FAERS Safety Report 14772589 (Version 4)
Quarter: 2018Q3

REPORT INFORMATION
  Report Type: Report from Study
  Country: None (occurrence: GB)
  Receive Date: 20180418
  Receipt Date: 20180831
  Transmission Date: 20181010
  Serious: Yes (Hospitalization, Other)
  Sender: FDA-Public Use
  Company Number: GB-ABBVIE-18K-167-2243662-00

PATIENT
  Age: 54 Year
  Sex: Male
  Weight: 79.9 kg

DRUGS (10)
  1. TRAMADOL. [Concomitant]
     Active Substance: TRAMADOL
     Indication: PRODUCT USED FOR UNKNOWN INDICATION
  2. CALCICHEW D3 FORTE [Concomitant]
     Active Substance: CALCIUM\CHOLECALCIFEROL
     Indication: PRODUCT USED FOR UNKNOWN INDICATION
  3. LOPERAMIDE [Concomitant]
     Active Substance: LOPERAMIDE
     Indication: PRODUCT USED FOR UNKNOWN INDICATION
     Dosage: TAKE ONE AFTER EACH LOOSE MOTION, MAXIMUM 8 PER DAY,?250 CAPSULE
  4. COLESTYRAMINE [Concomitant]
     Active Substance: CHOLESTYRAMINE
     Indication: PRODUCT USED FOR UNKNOWN INDICATION
     Dosage: SACHETS, 4G TWICE A DAY, 50 SACHETS
  5. VITAMIN D [Concomitant]
     Active Substance: CHOLECALCIFEROL
     Indication: PRODUCT USED FOR UNKNOWN INDICATION
  6. IMODIUM [Concomitant]
     Active Substance: LOPERAMIDE HYDROCHLORIDE
     Indication: PRODUCT USED FOR UNKNOWN INDICATION
  7. AMOXICILLIN. [Concomitant]
     Active Substance: AMOXICILLIN
     Indication: PRODUCT USED FOR UNKNOWN INDICATION
     Dosage: TAKE 3 TIMES A DAY, 21 CAPSULES
  8. HUMIRA [Suspect]
     Active Substance: ADALIMUMAB
     Indication: CROHN^S DISEASE
     Route: 058
     Dates: start: 20171219, end: 201801
  9. QUESTRAN [Concomitant]
     Active Substance: CHOLESTYRAMINE
     Indication: PRODUCT USED FOR UNKNOWN INDICATION
  10. PENTASA [Concomitant]
     Active Substance: MESALAMINE
     Indication: PRODUCT USED FOR UNKNOWN INDICATION
     Dosage: MODIFIED RELEASE GRANULES SACHETS?1 SACHET, 60 SACHET

REACTIONS (17)
  - Nasopharyngitis [Recovered/Resolved]
  - Atelectasis [Unknown]
  - Lung disorder [Unknown]
  - Renal impairment [Unknown]
  - Arthralgia [Not Recovered/Not Resolved]
  - Influenza [Recovering/Resolving]
  - C-reactive protein increased [Unknown]
  - Sepsis [Recovering/Resolving]
  - Pleuritic pain [Recovered/Resolved]
  - Skin lesion [Recovered/Resolved]
  - Pleurisy [Recovered/Resolved]
  - Pneumonia [Recovering/Resolving]
  - Chest pain [Recovered/Resolved]
  - Hypokalaemia [Recovered/Resolved]
  - Pulmonary pain [Not Recovered/Not Resolved]
  - Congenital spinal fusion [Unknown]
  - Intestinal anastomosis [Unknown]

NARRATIVE: CASE EVENT DATE: 201712
